FAERS Safety Report 6656279-9 (Version None)
Quarter: 2010Q1

REPORT INFORMATION
  Report Type: 
  Country: None (occurrence: None)
  Receive Date: 20100329
  Receipt Date: 20100318
  Transmission Date: 20100710
  Serious: Yes (Life-Threatening)
  Sender: FDA-Public Use
  Company Number: GXKR2010CL03294

PATIENT

DRUGS (1)
  1. OXALIPLATINO EBEWE (NGX) [Suspect]
     Route: 065

REACTIONS (2)
  - ANAPHYLACTIC SHOCK [None]
  - MYOCARDIAL INFARCTION [None]
